FAERS Safety Report 9291239 (Version 1)
Quarter: 2012Q4

REPORT INFORMATION
  Report Type: Spontaneous
  Country: GB (occurrence: None)
  Receive Date: 20121123
  Receipt Date: 20121123
  Transmission Date: 20130627
  Serious: Yes (Other)
  Sender: FDA-Public Use
  Company Number: 2012033632

PATIENT
  Age: 9 Year
  Sex: Female

DRUGS (1)
  1. HIZENTRA (IMMUNOGLOBULIN HUMAN NORMAL) [Suspect]

REACTIONS (2)
  - Meningitis aseptic [None]
  - Overdose [None]
